FAERS Safety Report 21334470 (Version 1)
Quarter: 2022Q3

REPORT INFORMATION
  Report Type: Report from Study
  Country: US (occurrence: US)
  Receive Date: 20220914
  Receipt Date: 20220914
  Transmission Date: 20221026
  Serious: Yes (Other)
  Sender: FDA-Public Use
  Company Number: US-ALLERGAN-2229969US

PATIENT
  Sex: Female

DRUGS (1)
  1. ATOGEPANT [Suspect]
     Active Substance: ATOGEPANT
     Indication: Product used for unknown indication
     Dosage: UNK
     Dates: start: 202207

REACTIONS (9)
  - Systemic lupus erythematosus [Unknown]
  - Cognitive disorder [Unknown]
  - Mood swings [Unknown]
  - Crying [Unknown]
  - Irritability [Unknown]
  - Insomnia [Unknown]
  - Hypersomnia [Unknown]
  - Major depression [Unknown]
  - Decreased appetite [Unknown]

NARRATIVE: CASE EVENT DATE: 20220101
